APPROVED DRUG PRODUCT: IMODIUM
Active Ingredient: LOPERAMIDE HYDROCHLORIDE
Strength: 1MG/5ML
Dosage Form/Route: SOLUTION;ORAL
Application: N019037 | Product #001
Applicant: JANSSEN PHARMACEUTICALS INC
Approved: Jul 31, 1984 | RLD: No | RS: No | Type: DISCN